FAERS Safety Report 4388933-6 (Version None)
Quarter: 2004Q3

REPORT INFORMATION
  Report Type: 
  Country: None (occurrence: None)
  Receive Date: 20040701
  Receipt Date: 20040701
  Transmission Date: 20050211
  Serious: Yes (Death, Hospitalization)
  Sender: FDA-Public Use
  Company Number: None

PATIENT
  Age: 65 Year
  Sex: Male
  Weight: 58.3 kg

DRUGS (12)
  1. FLUDARABINE ATG 2000MGX2 020804-020904 [Suspect]
     Indication: CHEMOTHERAPY
     Dosage: 52 MG QD INTRAVENOUS
     Route: 042
     Dates: start: 20040202, end: 20040206
  2. FLUDARABINE ATG 2000MGX2 020804-020904 [Suspect]
     Indication: STEM CELL TRANSPLANT
     Dosage: 52 MG QD INTRAVENOUS
     Route: 042
     Dates: start: 20040202, end: 20040206
  3. CYTOXAN [Suspect]
     Indication: MULTIPLE MYELOMA
     Dosage: 1.71 G QD INTRAVENOUS
     Route: 042
     Dates: start: 20040207, end: 20040208
  4. CYTOXAN [Suspect]
     Indication: STEM CELL TRANSPLANT
     Dosage: 1.71 G QD INTRAVENOUS
     Route: 042
     Dates: start: 20040207, end: 20040208
  5. CELLCEPT [Concomitant]
  6. DESFERRIOXAMINE [Concomitant]
  7. FLORINEF [Concomitant]
  8. AMPHOTERICIN B [Concomitant]
  9. ZOSYN [Concomitant]
  10. ACYCLOVIR [Concomitant]
  11. GM-CSF [Concomitant]
  12. DEMEROL [Concomitant]

REACTIONS (6)
  - BACTERAEMIA [None]
  - CHILLS [None]
  - COMPLICATIONS OF TRANSPLANT SURGERY [None]
  - FUNGAL INFECTION [None]
  - HAEMORRHAGE [None]
  - PYREXIA [None]
